FAERS Safety Report 16050108 (Version 1)
Quarter: 2019Q1

REPORT INFORMATION
  Report Type: Spontaneous
  Country: US (occurrence: US)
  Receive Date: 20190308
  Receipt Date: 20190308
  Transmission Date: 20190418
  Serious: No
  Sender: FDA-Public Use
  Company Number: US-GLAXOSMITHKLINE-US2019037048

PATIENT
  Sex: Male

DRUGS (1)
  1. ADVAIR DISKUS [Suspect]
     Active Substance: FLUTICASONE PROPIONATE\SALMETEROL XINAFOATE
     Indication: ASTHMA
     Dosage: 2 PUFF(S), BID
     Route: 055
     Dates: start: 20181215

REACTIONS (7)
  - Product storage error [Unknown]
  - Intentional product misuse [Unknown]
  - Dyspnoea exertional [Unknown]
  - Overdose [Unknown]
  - Product dose omission [Unknown]
  - Drug ineffective [Unknown]
  - Intentional underdose [Unknown]
